FAERS Safety Report 7935879-X (Version None)
Quarter: 2011Q4

REPORT INFORMATION
  Report Type: 
  Country: None (occurrence: None)
  Receive Date: 20111123
  Receipt Date: 20111117
  Transmission Date: 20120403
  Serious: Yes (Death)
  Sender: FDA-Public Use
  Company Number: IT-BAYER-2011-111489

PATIENT
  Age: 87 Year
  Sex: Male

DRUGS (1)
  1. NEXAVAR [Suspect]
     Indication: HEPATIC NEOPLASM MALIGNANT NON-RESECTABLE
     Dosage: DAILY DOSE 400 MG
     Route: 048
     Dates: start: 20110413, end: 20111016

REACTIONS (1)
  - CEREBROVASCULAR ACCIDENT [None]
